FAERS Safety Report 15444653 (Version 1)
Quarter: 2018Q3

REPORT INFORMATION
  Report Type: Spontaneous
  Country: US (occurrence: US)
  Receive Date: 20180928
  Receipt Date: 20180928
  Transmission Date: 20181010
  Serious: No
  Sender: FDA-Public Use
  Company Number: US-AMGEN-USASP2018043909

PATIENT
  Age: 73 Year
  Sex: Female

DRUGS (11)
  1. ATORVASTATIN [Concomitant]
     Active Substance: ATORVASTATIN
  2. VITAMIN D3 [Concomitant]
     Active Substance: CHOLECALCIFEROL
  3. CETIRIZINE [Concomitant]
     Active Substance: CETIRIZINE HYDROCHLORIDE
  4. PROLIA [Suspect]
     Active Substance: DENOSUMAB
     Indication: OSTEOPOROSIS POSTMENOPAUSAL
     Dosage: UNK
     Route: 065
  5. LISINOPRIL. [Concomitant]
     Active Substance: LISINOPRIL
  6. DOXEPINE [Concomitant]
     Active Substance: DOXEPIN
  7. FLUTICASONE. [Concomitant]
     Active Substance: FLUTICASONE
  8. CALCIUM [Concomitant]
     Active Substance: CALCIUM
     Dosage: 1000 MG, UNK
  9. MULTIVITAMIN [Concomitant]
     Active Substance: VITAMINS
  10. KETOTIFEN [Concomitant]
     Active Substance: KETOTIFEN
  11. LEVOTHYROXINE. [Concomitant]
     Active Substance: LEVOTHYROXINE

REACTIONS (1)
  - Abdominal mass [Unknown]

NARRATIVE: CASE EVENT DATE: 201802
